FAERS Safety Report 5521415-4 (Version None)
Quarter: 2007Q4

REPORT INFORMATION
  Report Type: 
  Country: None (occurrence: None)
  Receive Date: 20071119
  Receipt Date: 20071108
  Transmission Date: 20080405
  Serious: Yes (Hospitalization)
  Sender: FDA-Public Use
  Company Number: DE-PFIZER INC-2007083779

PATIENT
  Sex: Male

DRUGS (3)
  1. SORTIS [Suspect]
     Indication: BLOOD CHOLESTEROL INCREASED
     Dosage: DAILY DOSE:10MG-TEXT:HALF OF 20MG-FREQ:DAILY
     Route: 048
     Dates: start: 20030101, end: 20070701
  2. VALSARTAN [Concomitant]
     Route: 048
  3. PROSCAR [Concomitant]
     Route: 048

REACTIONS (4)
  - DEAFNESS [None]
  - DEAFNESS PERMANENT [None]
  - INNER EAR INFLAMMATION [None]
  - TINNITUS [None]
